FAERS Safety Report 5453233-X (Version None)
Quarter: 2007Q3

REPORT INFORMATION
  Report Type: 
  Country: None (occurrence: None)
  Receive Date: 20070914
  Receipt Date: 20070904
  Transmission Date: 20080115
  Serious: Yes (Other)
  Sender: FDA-Public Use
  Company Number: PT-PFIZER INC-2007074815

PATIENT
  Age: 70 Year
  Sex: Male

DRUGS (1)
  1. XALATAN [Suspect]
     Route: 047

REACTIONS (3)
  - APPLICATION SITE REACTION [None]
  - KERATITIS [None]
  - WRONG DRUG ADMINISTERED [None]
